FAERS Safety Report 9340703 (Version 2)
Quarter: 2013Q2

REPORT INFORMATION
  Report Type: Spontaneous
  Country: JP (occurrence: JP)
  Receive Date: 20130610
  Receipt Date: 20130618
  Transmission Date: 20140414
  Serious: Yes (Death)
  Sender: FDA-Public Use
  Company Number: JP-GLAXOSMITHKLINE-B0896024A

PATIENT
  Age: 65 Year
  Sex: Male
  Weight: 105 kg

DRUGS (1)
  1. VALTREX [Suspect]
     Indication: HERPES ZOSTER
     Dosage: 500MG THREE TIMES PER DAY
     Route: 048
     Dates: start: 20130524, end: 20130524

REACTIONS (3)
  - Hepatocellular carcinoma [Fatal]
  - Renal failure [Unknown]
  - Agitation [Recovered/Resolved]
